FAERS Safety Report 8885032 (Version 2)
Quarter: 2012Q4

REPORT INFORMATION
  Report Type: 
  Country: US (occurrence: US)
  Receive Date: 20121105
  Receipt Date: 20121114
  Transmission Date: 20130627
  Serious: Yes (Hospitalization)
  Sender: FDA-Public Use
  Company Number: US-BIOGENIDEC-2012BI048476

PATIENT
  Age: 41 Year
  Sex: Female

DRUGS (1)
  1. AVONEX [Suspect]
     Indication: MULTIPLE SCLEROSIS
     Route: 030
     Dates: start: 20020624, end: 20121001

REACTIONS (9)
  - Respiratory tract infection [Recovered/Resolved]
  - Respiratory arrest [Recovered/Resolved]
  - Multiple sclerosis relapse [Unknown]
  - Thyroid disorder [Not Recovered/Not Resolved]
  - Multiple allergies [Not Recovered/Not Resolved]
  - Central nervous system lesion [Not Recovered/Not Resolved]
  - Hypotension [Not Recovered/Not Resolved]
  - Anaemia [Not Recovered/Not Resolved]
  - Fatigue [Not Recovered/Not Resolved]
